FAERS Safety Report 8877408 (Version 3)
Quarter: 2013Q3

REPORT INFORMATION
  Report Type: Report from Study
  Country: JP (occurrence: JP)
  Receive Date: 20121024
  Receipt Date: 20130920
  Transmission Date: 20140515
  Serious: Yes (Hospitalization, Other)
  Sender: FDA-Public Use
  Company Number: JP-VERTEX PHARMACEUTICAL INC.-AE-2012-005993

PATIENT
  Age: 63 Year
  Sex: Female

DRUGS (16)
  1. VX-950 (TELAPREVIR) [Suspect]
     Indication: CHRONIC HEPATITIS C
     Dosage: 2250 MG, QD
     Route: 048
     Dates: start: 20120409, end: 20120527
  2. VX-950 (TELAPREVIR) [Suspect]
     Dosage: 750 MG, QD
     Route: 048
     Dates: start: 20120528, end: 20120603
  3. REBETOL [Suspect]
     Indication: CHRONIC HEPATITIS C
     Dosage: 600 MG, QD
     Route: 048
     Dates: start: 20120409, end: 20120513
  4. REBETOL [Suspect]
     Dosage: 400 MG, QD
     Route: 048
     Dates: start: 20120514, end: 20120520
  5. REBETOL [Suspect]
     Dosage: 200 MG, QD
     Route: 048
     Dates: start: 20120521, end: 20120923
  6. PEGINTERFERON ALFA-2B [Suspect]
     Indication: CHRONIC HEPATITIS C
     Dosage: 80 ?G/BODY, QW
     Route: 058
     Dates: start: 20120409, end: 20120918
  7. PREDONINE [Suspect]
     Indication: ADVERSE EVENT
     Dosage: 30 MG, QD
     Route: 048
     Dates: start: 20120417, end: 20120423
  8. PREDONINE [Suspect]
     Dosage: 15 MG, QD
     Route: 048
     Dates: start: 20120425, end: 20120501
  9. PREDONINE [Suspect]
     Dosage: 10 MG, QD
     Route: 048
     Dates: start: 20120502, end: 20120507
  10. URSO [Concomitant]
     Dosage: 600 MG, QD
     Route: 048
  11. LOXONIN [Concomitant]
     Dosage: 90 MG, QD
     Route: 048
     Dates: start: 20120409, end: 20120812
  12. VOLTAREN [Concomitant]
     Dosage: 25 MG, QD
     Route: 054
     Dates: start: 20120409, end: 20120409
  13. SELBEX [Concomitant]
     Dosage: 150 MG, QD
     Route: 048
     Dates: start: 20120409
  14. PARIET [Concomitant]
     Dosage: 10 MG, QD
     Route: 048
     Dates: start: 20120418, end: 20120507
  15. MYSLEE [Concomitant]
     Dosage: 1 DF, PRN
     Route: 048
     Dates: start: 20120420, end: 20120501
  16. BONALON [Concomitant]
     Dosage: 35 MG, QW
     Route: 048
     Dates: start: 20120424

REACTIONS (2)
  - Drug eruption [Recovered/Resolved]
  - Haemoglobin decreased [Recovered/Resolved]
